FAERS Safety Report 13942757 (Version 2)
Quarter: 2017Q4

REPORT INFORMATION
  Report Type: Spontaneous
  Country: US (occurrence: US)
  Receive Date: 20170907
  Receipt Date: 20171207
  Transmission Date: 20180320
  Serious: No
  Sender: FDA-Public Use
  Company Number: US-AMGEN-USASP2017118362

PATIENT
  Age: 59 Year
  Sex: Male

DRUGS (2)
  1. BLINCYTO [Suspect]
     Active Substance: BLINATUMOMAB
     Dosage: UNK
     Route: 065
  2. BLINCYTO [Suspect]
     Active Substance: BLINATUMOMAB
     Indication: ACUTE LYMPHOCYTIC LEUKAEMIA RECURRENT
     Dosage: 9 MUG, QD
     Route: 065

REACTIONS (1)
  - Leukocytosis [Not Recovered/Not Resolved]

NARRATIVE: CASE EVENT DATE: 20170731
